FAERS Safety Report 14516799 (Version 1)
Quarter: 2018Q1

REPORT INFORMATION
  Report Type: Report from Study
  Country: None (occurrence: DE)
  Receive Date: 20180212
  Receipt Date: 20180212
  Transmission Date: 20180509
  Serious: Yes (Hospitalization)
  Sender: FDA-Public Use
  Company Number: DE-ABBVIE-18K-062-2249843-00

PATIENT
  Age: 78 Year
  Sex: Female

DRUGS (8)
  1. MTX [Concomitant]
     Active Substance: METHOTREXATE SODIUM
  2. HUMIRA [Suspect]
     Active Substance: ADALIMUMAB
     Indication: RHEUMATOID ARTHRITIS
     Route: 058
     Dates: start: 200401, end: 200409
  3. MTX [Concomitant]
     Active Substance: METHOTREXATE SODIUM
     Dates: start: 2009
  4. MTX [Concomitant]
     Active Substance: METHOTREXATE SODIUM
     Dates: end: 2016
  5. MTX [Concomitant]
     Active Substance: METHOTREXATE SODIUM
     Indication: PRODUCT USED FOR UNKNOWN INDICATION
     Dates: start: 200401
  6. MTX [Concomitant]
     Active Substance: METHOTREXATE SODIUM
     Dates: start: 2016
  7. MTX [Concomitant]
     Active Substance: METHOTREXATE SODIUM
     Dates: end: 2009
  8. MTX [Concomitant]
     Active Substance: METHOTREXATE SODIUM

REACTIONS (1)
  - Skin ulcer [Unknown]

NARRATIVE: CASE EVENT DATE: 20170214
